FAERS Safety Report 9029191 (Version 1)
Quarter: 2013Q1

REPORT INFORMATION
  Report Type: Spontaneous
  Country: IL (occurrence: IL)
  Receive Date: 20130125
  Receipt Date: 20130125
  Transmission Date: 20140127
  Serious: Yes (Other)
  Sender: FDA-Public Use
  Company Number: IL-JNJFOC-20130111660

PATIENT
  Sex: Male

DRUGS (4)
  1. KETOCONAZOLE [Suspect]
     Indication: PROSTATE CANCER METASTATIC
     Route: 048
  2. KETOCONAZOLE [Suspect]
     Indication: PROSTATE CANCER METASTATIC
     Route: 048
  3. GONADOTROPIN CHORIONIC HUMAN [Suspect]
     Indication: PROSTATE CANCER METASTATIC
     Route: 065
  4. HYDROCORTISONE [Suspect]
     Indication: PROSTATE CANCER METASTATIC
     Dosage: 30 MG MORNING AND 10 MG NIGHT
     Route: 065

REACTIONS (9)
  - Prostate cancer metastatic [Unknown]
  - Fatigue [Unknown]
  - Abdominal discomfort [Unknown]
  - Nausea [Unknown]
  - Dizziness [Unknown]
  - Hepatotoxicity [Unknown]
  - Toxicity to various agents [Unknown]
  - Withdrawal syndrome [Unknown]
  - Off label use [Unknown]
